FAERS Safety Report 23312915 (Version 1)
Quarter: 2023Q4

REPORT INFORMATION
  Report Type: Spontaneous
  Country: US (occurrence: None)
  Receive Date: 20231219
  Receipt Date: 20231219
  Transmission Date: 20240109
  Serious: No
  Sender: FDA-Public Use
  Company Number: 2023A282742

PATIENT

DRUGS (2)
  1. BYDUREON BCISE [Suspect]
     Active Substance: EXENATIDE
  2. INSULIN NOS [Concomitant]
     Active Substance: INSULIN NOS
     Dosage: 10 MG OF INSULIN BEFORE EACH MEAL AND AS NEEDED, THEN 32 MG ONCE A DAY,

REACTIONS (1)
  - Drug-device interaction [Unknown]
